FAERS Safety Report 10101523 (Version 1)
Quarter: 2014Q2

REPORT INFORMATION
  Report Type: Spontaneous
  Country: US (occurrence: None)
  Receive Date: 20140423
  Receipt Date: 20140423
  Transmission Date: 20141212
  Serious: Yes (Disabling, Other)
  Sender: FDA-Public Use
  Company Number: None

PATIENT
  Age: 69 Year
  Sex: Male

DRUGS (1)
  1. CIPROFLOXACIN [Suspect]
     Dosage: 15 TABLETS, BY MOUTH
     Dates: start: 20131206, end: 20131210

REACTIONS (3)
  - Tendon rupture [None]
  - Haemorrhage [None]
  - Movement disorder [None]
